FAERS Safety Report 10334984 (Version 1)
Quarter: 2014Q3

REPORT INFORMATION
  Report Type: Spontaneous
  Country: DK (occurrence: DK)
  Receive Date: 20140723
  Receipt Date: 20140723
  Transmission Date: 20150326
  Serious: Yes (Hospitalization)
  Sender: FDA-Public Use
  Company Number: PHHY2014DK087703

PATIENT
  Age: 76 Year
  Sex: Male

DRUGS (15)
  1. SPIRIX [Concomitant]
     Active Substance: SPIRONOLACTONE
  2. CITALOPRAM [Concomitant]
     Active Substance: CITALOPRAM HYDROBROMIDE
  3. LAXOBERAL [Concomitant]
     Active Substance: SODIUM PICOSULFATE
  4. MANDOLGIN RETARD [Suspect]
     Active Substance: TRAMADOL
     Indication: PAIN
     Dosage: 50 MG, TID
     Route: 048
  5. BETOLVEX [Concomitant]
     Active Substance: CYANOCOBALAMIN
  6. GABAPENTIN. [Concomitant]
     Active Substance: GABAPENTIN
  7. KALEORID [Concomitant]
     Active Substance: POTASSIUM CHLORIDE
  8. FURIX [Concomitant]
     Active Substance: FUROSEMIDE
  9. MASULIN [Concomitant]
     Active Substance: TAMSULOSIN HYDROCHLORIDE
  10. PAMOL [Concomitant]
     Active Substance: ACETAMINOPHEN
  11. MATRIFEN [Suspect]
     Active Substance: FENTANYL
     Indication: PAIN
     Route: 003
  12. LANSOPRAZOL [Concomitant]
     Active Substance: LANSOPRAZOLE
  13. MOXALOLE [Concomitant]
  14. SPIRIVA [Concomitant]
     Active Substance: TIOTROPIUM BROMIDE MONOHYDRATE
  15. MIANSERIN [Concomitant]
     Active Substance: MIANSERIN

REACTIONS (5)
  - Blood pressure increased [None]
  - Cyanosis [Recovered/Resolved]
  - Stupor [Recovered/Resolved]
  - Heart rate increased [None]
  - Overdose [Recovering/Resolving]

NARRATIVE: CASE EVENT DATE: 20140512
